FAERS Safety Report 8000132-5 (Version None)
Quarter: 2011Q4

REPORT INFORMATION
  Report Type: 
  Country: None (occurrence: None)
  Receive Date: 20111220
  Receipt Date: 20111220
  Transmission Date: 20120403
  Serious: Yes (Other)
  Sender: FDA-Public Use
  Company Number: None

PATIENT
  Age: 39 Year
  Sex: Male
  Weight: 54.4316 kg

DRUGS (2)
  1. HUMAN GROWTH COMPLEX ULTRALAB NUTRITION [Suspect]
     Indication: WEIGHT CONTROL
     Dosage: 3 DAILY ORAL
     Route: 048
     Dates: start: 20111030, end: 20111105
  2. HUMAN GROWTH COMPLEX ULTRALAB NUTRITION [Suspect]
     Indication: MALAISE
     Dosage: 3 DAILY ORAL
     Route: 048
     Dates: start: 20111030, end: 20111105

REACTIONS (1)
  - HEADACHE [None]
